FAERS Safety Report 5149352-8 (Version None)
Quarter: 2006Q4

REPORT INFORMATION
  Report Type: 
  Country: None (occurrence: None)
  Receive Date: 20061113
  Receipt Date: 20051111
  Transmission Date: 20070319
  Serious: No
  Sender: FDA-Public Use
  Company Number: S2005US17272

PATIENT
  Sex: Female

DRUGS (1)
  1. COREG [Suspect]
     Indication: DRUG USE FOR UNKNOWN INDICATION
     Dosage: 12.5U UNKNOWN
     Route: 065
     Dates: start: 20050201

REACTIONS (1)
  - BLOOD PRESSURE INCREASED [None]
